FAERS Safety Report 6311775 (Version 2)
Quarter: 2014Q2

REPORT INFORMATION
  Report Type: Spontaneous
  Country: US (occurrence: US)
  Receive Date: 20070201
  Receipt Date: 20140510
  Transmission Date: 20141212
  Serious: No
  Sender: FDA-Public Use
  Company Number: 2006PV025529

PATIENT
  Age: 54 Year
  Sex: Female
  Weight: 89.81 kg

DRUGS (9)
  1. BYETTA [Suspect]
     Indication: TYPE 2 DIABETES MELLITUS
     Route: 058
     Dates: start: 200709, end: 200710
  2. BYETTA [Suspect]
     Indication: TYPE 2 DIABETES MELLITUS
     Route: 058
     Dates: start: 200710
  3. BYETTA [Suspect]
     Indication: TYPE 2 DIABETES MELLITUS
     Route: 058
     Dates: start: 200610
  4. BYETTA [Suspect]
     Indication: TYPE 2 DIABETES MELLITUS
     Route: 058
     Dates: start: 20060918, end: 200610
  5. EXENATIDE 5MCG PEN, DISPOSABLE DEVICE [Concomitant]
  6. EXENATIDE 10MCG PEN, DISPOSABLE DEVICE [Concomitant]
  7. EXENATIDE 10MCG PEN, DISPOSABLE DEVICE [Concomitant]
  8. METFORMIN HCL [Concomitant]
     Indication: TYPE 2 DIABETES MELLITUS
  9. ACTOS [Concomitant]
     Indication: TYPE 2 DIABETES MELLITUS

REACTIONS (3)
  - Weight decreased [Not Recovered/Not Resolved]
  - Decreased appetite [Not Recovered/Not Resolved]
  - Vomiting [Not Recovered/Not Resolved]
